FAERS Safety Report 24405373 (Version 1)
Quarter: 2024Q4

REPORT INFORMATION
  Report Type: Spontaneous
  Country: NL (occurrence: None)
  Receive Date: 20241007
  Receipt Date: 20241007
  Transmission Date: 20250115
  Serious: Yes (Hospitalization, Other)
  Sender: ACS DOBFAR
  Company Number: NL-ACS-20240394

PATIENT
  Age: 4 Decade
  Sex: Male

DRUGS (5)
  1. CEFTRIAXONE [Suspect]
     Active Substance: CEFTRIAXONE
  2. RIFAMPIN [Concomitant]
     Active Substance: RIFAMPIN
     Indication: Tuberculosis
  3. ISONIAZID [Concomitant]
     Active Substance: ISONIAZID
     Indication: Tuberculosis
  4. ETHAMBUTOL [Concomitant]
     Active Substance: ETHAMBUTOL HYDROCHLORIDE
     Indication: Tuberculosis
  5. PYRAZINAMIDE [Concomitant]
     Active Substance: PYRAZINAMIDE
     Indication: Tuberculosis

REACTIONS (1)
  - Immune thrombocytopenia [Recovering/Resolving]
